FAERS Safety Report 14924206 (Version 2)
Quarter: 2018Q3

REPORT INFORMATION
  Report Type: Spontaneous
  Country: JP (occurrence: JP)
  Receive Date: 20180522
  Receipt Date: 20180906
  Transmission Date: 20181010
  Serious: Yes (Death, Life-Threatening, Other)
  Sender: FDA-Public Use
  Company Number: JP-PFIZER INC-2018202822

PATIENT
  Age: 88 Year
  Sex: Male
  Weight: 44 kg

DRUGS (1)
  1. SUTENT [Suspect]
     Active Substance: SUNITINIB MALATE
     Indication: RENAL CANCER METASTATIC
     Dosage: 37.5 MG, 1X/DAY
     Route: 048
     Dates: start: 20170710, end: 20170723

REACTIONS (2)
  - Death [Fatal]
  - Pneumopericardium [Unknown]

NARRATIVE: CASE EVENT DATE: 20170806
